FAERS Safety Report 6926431-3 (Version None)
Quarter: 2010Q3

REPORT INFORMATION
  Report Type: 
  Country: None (occurrence: None)
  Receive Date: 20100816
  Receipt Date: 20100720
  Transmission Date: 20110219
  Serious: Yes (Other)
  Sender: FDA-Public Use
  Company Number: BR-BAYER-201013675LA

PATIENT
  Age: 47 Year
  Sex: Female

DRUGS (7)
  1. BETAFERON [Suspect]
     Indication: RELAPSING-REMITTING MULTIPLE SCLEROSIS
     Dosage: BETAJECT
     Route: 058
     Dates: start: 20090401
  2. ACETAMINOPHEN [Concomitant]
     Indication: PREMEDICATION
     Route: 048
     Dates: start: 20090401
  3. RIVOTRIL [Concomitant]
     Indication: SLEEP DISORDER THERAPY
     Dosage: TOTAL DAILY DOSE: 1 DF
     Route: 048
     Dates: start: 20060101
  4. AMITRIPTYLINE HYDROCHLORIDE [Concomitant]
     Indication: SLEEP DISORDER THERAPY
     Dosage: TOTAL DAILY DOSE: 1 DF
     Route: 048
     Dates: start: 20060101
  5. SERTRALINE HYDROCHLORIDE [Concomitant]
     Indication: SLEEP DISORDER THERAPY
     Dosage: TOTAL DAILY DOSE: 1 DF
     Route: 048
     Dates: start: 20100101
  6. PAROXETINE HCL [Concomitant]
     Indication: ANTIDEPRESSANT THERAPY
     Dosage: TOTAL DAILY DOSE: 1 DF
     Route: 048
     Dates: start: 20091101, end: 20100101
  7. PROPRANOLOL [Concomitant]
     Indication: HYPERTENSION
     Dosage: AS USED: 2 DF
     Route: 048
     Dates: start: 20040101

REACTIONS (6)
  - ABDOMINAL DISTENSION [None]
  - ABDOMINAL PAIN UPPER [None]
  - CONSTIPATION [None]
  - HALLUCINATIONS, MIXED [None]
  - INJECTION SITE MASS [None]
  - INJECTION SITE PAIN [None]
